FAERS Safety Report 13659580 (Version 7)
Quarter: 2017Q4

REPORT INFORMATION
  Report Type: Spontaneous
  Country: US (occurrence: US)
  Receive Date: 20170616
  Receipt Date: 20171026
  Transmission Date: 20180320
  Serious: Yes (Congenital Anomaly, Other)
  Sender: FDA-Public Use
  Company Number: PHEH2017US018333

PATIENT
  Sex: Female

DRUGS (2)
  1. ZOFRAN [Suspect]
     Active Substance: ONDANSETRON HYDROCHLORIDE
     Indication: FOETAL EXPOSURE DURING PREGNANCY
     Dosage: MOTHER^S DOSE: 04 MG, PRN
     Route: 064
  2. ZOFRAN ODT [Suspect]
     Active Substance: ONDANSETRON HYDROCHLORIDE
     Indication: FOETAL EXPOSURE DURING PREGNANCY
     Route: 064

REACTIONS (51)
  - Speech sound disorder [Unknown]
  - Urinary tract infection [Unknown]
  - Cardiac murmur [Unknown]
  - Syncope [Unknown]
  - Reading disorder [Unknown]
  - Bicuspid pulmonary valve [Unknown]
  - Macrocephaly [Unknown]
  - Reflux nephropathy [Unknown]
  - Foetal exposure during pregnancy [Unknown]
  - Speech disorder [Unknown]
  - Attention deficit/hyperactivity disorder [Unknown]
  - Conjunctivitis [Unknown]
  - Dermatitis diaper [Unknown]
  - Wheezing [Unknown]
  - Vulvovaginal discomfort [Unknown]
  - Pulmonary artery dilatation [Unknown]
  - Pulmonary valve incompetence [Unknown]
  - Otitis media [Unknown]
  - Upper respiratory tract infection [Unknown]
  - Sinusitis [Unknown]
  - Folliculitis [Unknown]
  - Clumsiness [Unknown]
  - Abdominal pain [Unknown]
  - Bronchiolitis [Unknown]
  - Breath holding [Unknown]
  - Pharyngitis [Unknown]
  - Dysuria [Unknown]
  - Animal bite [Unknown]
  - Eye pain [Unknown]
  - Fine motor delay [Unknown]
  - Diarrhoea [Unknown]
  - Anxiety [Unknown]
  - Heart disease congenital [Unknown]
  - Cytogenetic abnormality [Unknown]
  - Developmental delay [Unknown]
  - Ear pain [Unknown]
  - Cough [Unknown]
  - Dermatitis [Unknown]
  - Pyrexia [Unknown]
  - Constipation [Unknown]
  - Headache [Unknown]
  - Plagiocephaly [Unknown]
  - Conductive deafness [Unknown]
  - Rhinitis allergic [Unknown]
  - Epistaxis [Unknown]
  - Tympanic membrane perforation [Unknown]
  - Urinary incontinence [Unknown]
  - Depression [Unknown]
  - Dyspnoea [Unknown]
  - Injury [Unknown]
  - Vomiting [Unknown]
